FAERS Safety Report 8036228-1 (Version None)
Quarter: 2012Q1

REPORT INFORMATION
  Report Type: 
  Country: None (occurrence: None)
  Receive Date: 20120111
  Receipt Date: 20120105
  Transmission Date: 20120608
  Serious: No
  Sender: FDA-Public Use
  Company Number: PHEH2011US00826

PATIENT
  Sex: Male

DRUGS (8)
  1. GLUCOFAGE [Concomitant]
     Dosage: 500 MG, BID
     Route: 048
  2. NEXIUM [Concomitant]
  3. PLAVIX [Concomitant]
     Dosage: UNK UKN, UNK
  4. TASIGNA [Suspect]
     Indication: CHRONIC MYELOID LEUKAEMIA
     Dosage: 300 MG, BID
     Route: 048
     Dates: start: 20110406
  5. LIPITOR [Concomitant]
     Dosage: UNK UKN, UNK
  6. PROZAC [Concomitant]
  7. CARAFATE [Concomitant]
     Indication: GASTROOESOPHAGEAL REFLUX DISEASE
  8. RAMIPRIL [Concomitant]
     Dosage: UNK UKN, UNK

REACTIONS (12)
  - RASH PRURITIC [None]
  - BALANCE DISORDER [None]
  - CONCOMITANT DISEASE AGGRAVATED [None]
  - OEDEMA PERIPHERAL [None]
  - GASTROOESOPHAGEAL REFLUX DISEASE [None]
  - FATIGUE [None]
  - VOMITING [None]
  - DYSPEPSIA [None]
  - ARTHRALGIA [None]
  - DYSPHAGIA [None]
  - NAUSEA [None]
  - SENSATION OF HEAVINESS [None]
